FAERS Safety Report 25154295 (Version 3)
Quarter: 2025Q3

REPORT INFORMATION
  Report Type: Spontaneous
  Country: US (occurrence: US)
  Receive Date: 20250403
  Receipt Date: 20250703
  Transmission Date: 20251021
  Serious: No
  Sender: BRISTOL-MYERS SQUIBB COMPANY
  Company Number: US-EXELIXIS-EXL-2025-005554

PATIENT
  Age: 58 Year
  Sex: Male

DRUGS (3)
  1. OPDIVO [Suspect]
     Active Substance: NIVOLUMAB
     Indication: Renal cancer
  2. CABOMETYX [Suspect]
     Active Substance: CABOZANTINIB S-MALATE
     Indication: Renal cancer
     Dosage: 40 MG, QD
     Route: 048
     Dates: start: 202502, end: 202503
  3. CABOMETYX [Suspect]
     Active Substance: CABOZANTINIB S-MALATE
     Dosage: 40 MG, QD, ?THERAPY START DATE: 02-APR-2025
     Route: 048

REACTIONS (9)
  - Glossodynia [Not Recovered/Not Resolved]
  - Constipation [Unknown]
  - Pruritus [Recovering/Resolving]
  - Herpes zoster [Recovering/Resolving]
  - Aphonia [Unknown]
  - Dry eye [Unknown]
  - Chills [Unknown]
  - Ageusia [Unknown]
  - Dry mouth [Unknown]

NARRATIVE: CASE EVENT DATE: 20250324
